FAERS Safety Report 23723222 (Version 1)
Quarter: 2024Q2

REPORT INFORMATION
  Report Type: Spontaneous
  Country: US (occurrence: US)
  Receive Date: 20240409
  Receipt Date: 20240409
  Transmission Date: 20240716
  Serious: No
  Sender: FDA-Public Use
  Company Number: US-HISAMITSU-2023-US-042458

PATIENT
  Age: 72 Year
  Sex: Female
  Weight: 66.68 kg

DRUGS (4)
  1. SALONPAS LIDOCAINE PAIN RELIEVING [Suspect]
     Active Substance: LIDOCAINE
     Indication: Product used for unknown indication
     Dosage: ONE PATCH FOR 8 HOURS OR LONGER
     Route: 061
     Dates: start: 20231206, end: 20231209
  2. VITAMINS [Concomitant]
     Active Substance: VITAMINS
  3. unspecified vape [Concomitant]
     Dosage: OCCASIONAL USE
  4. SALONPAS PAIN RELIEF [Suspect]
     Active Substance: MENTHOL\METHYL SALICYLATE
     Indication: Product used for unknown indication
     Dosage: ONE PATCH FOR 12 HOURS
     Route: 061
     Dates: start: 20231208, end: 20231208

REACTIONS (2)
  - Application site erythema [Recovering/Resolving]
  - Application site pruritus [Recovered/Resolved]

NARRATIVE: CASE EVENT DATE: 20231209
